FAERS Safety Report 7560002-3 (Version None)
Quarter: 2011Q2

REPORT INFORMATION
  Report Type: 
  Country: None (occurrence: None)
  Receive Date: 20110621
  Receipt Date: 20110608
  Transmission Date: 20111010
  Serious: Yes (Hospitalization, Other)
  Sender: FDA-Public Use
  Company Number: PHFR2011GB02288

PATIENT
  Sex: Female

DRUGS (4)
  1. CLOZAPINE [Suspect]
     Dosage: 500 MG
     Route: 048
  2. CLOZAPINE [Suspect]
     Dosage: 250 MG
     Route: 048
  3. CLOZAPINE [Suspect]
     Dosage: 300 MG, DAILY
     Route: 048
     Dates: start: 20110329
  4. CLOZAPINE [Suspect]
     Indication: SCHIZOPHRENIA
     Route: 048
     Dates: start: 20000926

REACTIONS (3)
  - CHEST DISCOMFORT [None]
  - ANTIPSYCHOTIC DRUG LEVEL ABOVE THERAPEUTIC [None]
  - LOWER RESPIRATORY TRACT INFECTION [None]
